FAERS Safety Report 22013322 (Version 3)
Quarter: 2023Q1

REPORT INFORMATION
  Report Type: Spontaneous
  Country: US (occurrence: US)
  Receive Date: 20230220
  Receipt Date: 20230320
  Transmission Date: 20230418
  Serious: Yes (Other)
  Sender: FDA-Public Use
  Company Number: US-LUNDBECK-DKLU3058217

PATIENT
  Age: 61 Year
  Sex: Female
  Weight: 86.2 kg

DRUGS (1)
  1. VYEPTI [Suspect]
     Active Substance: EPTINEZUMAB-JJMR
     Indication: Migraine
     Route: 041
     Dates: start: 20230207

REACTIONS (4)
  - Pneumonia [Unknown]
  - Cataract operation [Unknown]
  - Bronchitis [Unknown]
  - Migraine [Unknown]
